FAERS Safety Report 7640155-9 (Version None)
Quarter: 2011Q3

REPORT INFORMATION
  Report Type: 
  Country: None (occurrence: None)
  Receive Date: 20110728
  Receipt Date: 20110715
  Transmission Date: 20111222
  Serious: No
  Sender: FDA-Public Use
  Company Number: US-BAYER-2011-062946

PATIENT
  Age: 83 Year
  Sex: Female
  Weight: 72 kg

DRUGS (7)
  1. ALEVE (CAPLET) [Suspect]
     Indication: ANALGESIC THERAPY
     Dosage: 1 DF, QD
     Route: 048
     Dates: start: 20110710, end: 20110711
  2. SYNTHROID [Concomitant]
  3. TOPROL-XL [Concomitant]
  4. PRAVACHOL [Concomitant]
  5. ZOLOFT [Concomitant]
  6. ZANTAC [Concomitant]
  7. LAXATIVE [Concomitant]

REACTIONS (3)
  - NERVOUSNESS [None]
  - HEADACHE [None]
  - FEELING JITTERY [None]
